FAERS Safety Report 7083560-4 (Version None)
Quarter: 2010Q4

REPORT INFORMATION
  Report Type: 
  Country: None (occurrence: None)
  Receive Date: 20101103
  Receipt Date: 20101103
  Transmission Date: 20110411
  Serious: Yes (Other)
  Sender: FDA-Public Use
  Company Number: None

PATIENT
  Sex: Female
  Weight: 51.2565 kg

DRUGS (2)
  1. VENLAFAXINE [Suspect]
     Indication: DEPRESSION
     Dosage: 150MG
     Dates: start: 20100801, end: 20101001
  2. VENLAFAXINE [Suspect]
     Indication: FIBROMYALGIA
     Dosage: 150MG
     Dates: start: 20100801, end: 20101001

REACTIONS (1)
  - DRUG INEFFECTIVE [None]
